FAERS Safety Report 7521989-8 (Version None)
Quarter: 2011Q2

REPORT INFORMATION
  Report Type: 
  Country: None (occurrence: None)
  Receive Date: 20110603
  Receipt Date: 20110520
  Transmission Date: 20111010
  Serious: Yes (Hospitalization)
  Sender: FDA-Public Use
  Company Number: CZ-BAYER-2011-008788

PATIENT
  Age: 59 Year
  Sex: Male
  Weight: 77 kg

DRUGS (6)
  1. CLOPIDOGREL [Suspect]
     Indication: ACUTE CORONARY SYNDROME
     Route: 048
  2. SORBIFER [Concomitant]
  3. RIVAROXABAN [Suspect]
     Indication: ACUTE CORONARY SYNDROME
     Dosage: DOSAGE FORM: TABLET
     Route: 048
     Dates: start: 20100914, end: 20110112
  4. RIVAROXABAN [Suspect]
     Dosage: DOSAGE FORM: TABLET
     Route: 048
     Dates: start: 20100913, end: 20100913
  5. ACETYLSALICYLIC ACID SRT [Suspect]
     Indication: ACUTE CORONARY SYNDROME
     Route: 048
  6. HELICID [Concomitant]

REACTIONS (2)
  - ANGINA UNSTABLE [None]
  - ANAEMIA [None]
